FAERS Safety Report 22609471 (Version 2)
Quarter: 2023Q2

REPORT INFORMATION
  Report Type: Report from Study
  Country: TW (occurrence: TW)
  Receive Date: 20230616
  Receipt Date: 20230621
  Transmission Date: 20230722
  Serious: Yes (Hospitalization)
  Sender: FDA-Public Use
  Company Number: TW-JNJFOC-20230620450

PATIENT
  Age: 70 Year
  Sex: Female
  Weight: 65.4 kg

DRUGS (13)
  1. AMIVANTAMAB [Suspect]
     Active Substance: AMIVANTAMAB
     Indication: Non-small cell lung cancer metastatic
     Route: 042
     Dates: start: 20220818, end: 20230518
  2. CARBOPLATIN [Concomitant]
     Active Substance: CARBOPLATIN
     Indication: Non-small cell lung cancer metastatic
     Route: 042
     Dates: start: 20220818, end: 20221020
  3. PEMETREXED [Concomitant]
     Active Substance: PEMETREXED
     Indication: Non-small cell lung cancer metastatic
     Route: 042
     Dates: start: 20220818, end: 20230518
  4. TETRACYCLINE [Concomitant]
     Active Substance: TETRACYCLINE
     Indication: Prophylaxis
     Dosage: PROPHYLAXIS SKIN RASH AND ONGOING MH/ AE PARONYCHIA?DOSE 1, UNITS NOT PROVIDED
     Route: 061
     Dates: start: 20220722
  5. TETRACYCLINE [Concomitant]
     Active Substance: TETRACYCLINE
     Indication: Paronychia
  6. HYDROCORTISONE ACETATE [Concomitant]
     Active Substance: HYDROCORTISONE ACETATE
     Indication: Dermatitis acneiform
     Route: 050
     Dates: start: 20220909
  7. NYSTATIN [Concomitant]
     Active Substance: NYSTATIN
     Indication: Stomatitis
     Route: 048
     Dates: start: 20221006
  8. MAGNESIUM OXIDE [Concomitant]
     Active Substance: MAGNESIUM OXIDE
     Indication: Mineral supplementation
     Route: 048
     Dates: start: 20221014
  9. FUSIDIC ACID [Concomitant]
     Active Substance: FUSIDIC ACID
     Indication: Dermatitis acneiform
     Route: 061
     Dates: start: 20230105
  10. EDOXABAN TOSYLATE [Concomitant]
     Active Substance: EDOXABAN TOSYLATE
     Indication: Cerebrovascular accident prophylaxis
     Route: 048
     Dates: start: 20230106
  11. MOMETASONE FUROATE [Concomitant]
     Active Substance: MOMETASONE FUROATE
     Indication: Pruritus
     Dosage: DOSE 1, UNITS NOT PROVIDED
     Route: 061
     Dates: start: 20230209
  12. ACYCLOVIR [Concomitant]
     Active Substance: ACYCLOVIR
     Indication: Skin ulcer
     Dosage: FREQ: OTHER
     Route: 061
     Dates: start: 20230531, end: 20230604
  13. FAMCICLOVIR [Concomitant]
     Active Substance: FAMCICLOVIR
     Indication: Skin ulcer
     Route: 048
     Dates: start: 20230531, end: 20230604

REACTIONS (1)
  - Folliculitis [Not Recovered/Not Resolved]

NARRATIVE: CASE EVENT DATE: 20230608
